FAERS Safety Report 23984173 (Version 2)
Quarter: 2024Q2

REPORT INFORMATION
  Report Type: Spontaneous
  Country: US (occurrence: US)
  Receive Date: 20240618
  Receipt Date: 20240624
  Transmission Date: 20240716
  Serious: No
  Sender: FDA-Public Use
  Company Number: US-ABBVIE-5803702

PATIENT
  Sex: Female
  Weight: 72.574 kg

DRUGS (8)
  1. CREON [Suspect]
     Active Substance: PANCRELIPASE AMYLASE\PANCRELIPASE LIPASE\PANCRELIPASE PROTEASE
     Indication: Pancreatic enzymes decreased
     Dosage: FORM STRENGTH: 36000 UNIT?FREQUENCY TEXT: 2 CAPSULES PER MEAL AND 1 PER SNACK
     Route: 048
     Dates: start: 2022
  2. CREON [Suspect]
     Active Substance: PANCRELIPASE AMYLASE\PANCRELIPASE LIPASE\PANCRELIPASE PROTEASE
     Indication: Pancreatic enzymes decreased
     Route: 048
  3. CYMBALTA [Concomitant]
     Active Substance: DULOXETINE HYDROCHLORIDE
     Indication: Fibromyalgia
     Dosage: 60 MILLIGRAM
  4. MAGNESIUM [Concomitant]
     Active Substance: MAGNESIUM
     Indication: Mineral supplementation
  5. Citracal, /old form/ [Concomitant]
     Indication: Mineral supplementation
  6. LORAZEPAM [Concomitant]
     Active Substance: LORAZEPAM
     Indication: Anxiety
  7. GABAPENTIN [Concomitant]
     Active Substance: GABAPENTIN
     Indication: Neuropathy peripheral
  8. ROGAINE [Concomitant]
     Active Substance: MINOXIDIL
     Indication: Alopecia

REACTIONS (3)
  - General symptom [Unknown]
  - Steatorrhoea [Not Recovered/Not Resolved]
  - Mucous stools [Not Recovered/Not Resolved]

NARRATIVE: CASE EVENT DATE: 20240501
